FAERS Safety Report 5215843-4 (Version None)
Quarter: 2007Q1

REPORT INFORMATION
  Report Type: 
  Country: None (occurrence: None)
  Receive Date: 20070123
  Receipt Date: 20070119
  Transmission Date: 20070707
  Serious: Yes (Other)
  Sender: FDA-Public Use
  Company Number: US-GLAXOSMITHKLINE-A0636311A

PATIENT
  Sex: Female

DRUGS (4)
  1. ARIXTRA [Suspect]
     Dosage: 7.5MG PER DAY
     Route: 058
     Dates: start: 20050501
  2. DONNATAL EXTENTABS [Concomitant]
  3. TRANXENE [Concomitant]
  4. ZANTAC [Concomitant]

REACTIONS (2)
  - COAGULOPATHY [None]
  - CONTUSION [None]
